FAERS Safety Report 15604639 (Version 1)
Quarter: 2018Q4

REPORT INFORMATION
  Report Type: Other
  Country: ES (occurrence: ES)
  Receive Date: 20181111
  Receipt Date: 20181111
  Transmission Date: 20190205
  Serious: Yes (Death, Hospitalization, Other)
  Sender: FDA-Public Use
  Company Number: ES-APOTEX-2018AP024260

PATIENT
  Age: 59 Year
  Sex: Female

DRUGS (3)
  1. LORAZEPAM. [Interacting]
     Active Substance: LORAZEPAM
     Indication: SUICIDE ATTEMPT
     Dosage: 25 MG, QD
     Route: 048
     Dates: start: 20180410, end: 20180410
  2. TRAMADOL. [Suspect]
     Active Substance: TRAMADOL
     Indication: SUICIDE ATTEMPT
     Dosage: 3.5 G, QD
     Route: 048
     Dates: start: 20180410, end: 20180410
  3. GABAPENTIN. [Interacting]
     Active Substance: GABAPENTIN
     Indication: SUICIDE ATTEMPT
     Dosage: IN TOTAL
     Route: 048
     Dates: start: 20180410, end: 20180410

REACTIONS (2)
  - Coma [Fatal]
  - Intentional overdose [Fatal]

NARRATIVE: CASE EVENT DATE: 20180411
